FAERS Safety Report 8121006-5 (Version None)
Quarter: 2012Q1

REPORT INFORMATION
  Report Type: 
  Country: None (occurrence: None)
  Receive Date: 20120208
  Receipt Date: 20120203
  Transmission Date: 20120608
  Serious: Yes (Other)
  Sender: FDA-Public Use
  Company Number: US-BAYER-2012-011813

PATIENT
  Age: 32 Year
  Sex: Female
  Weight: 142.8 kg

DRUGS (9)
  1. DROSPIRENONE AND ETHINYL ESTRADIOL [Suspect]
  2. TOPAMAX [Concomitant]
     Dosage: 125 MG, BID
     Route: 048
     Dates: start: 20091119
  3. ASTELIN [Concomitant]
     Dosage: UNK
     Route: 055
     Dates: start: 20091119
  4. RELAFEN [Concomitant]
     Dosage: 750 MG, BID
     Route: 048
     Dates: start: 20091119
  5. XANAX [Concomitant]
     Indication: ANXIETY
     Dosage: UNK UNK, PRN
     Route: 048
     Dates: start: 20091119
  6. FLEXERIL [Concomitant]
     Dosage: 10 MG, TID
     Route: 048
     Dates: start: 20091119
  7. YASMIN [Suspect]
     Indication: PRODUCT USED FOR UNKNOWN INDICATION
  8. NAPROXEN SODIUM AND PSEUDOEPHEDRINE HYDROCHLORIDE [Concomitant]
     Dosage: 550 MG, PRN
     Route: 048
     Dates: start: 20091119
  9. YAZ [Suspect]
     Indication: PRODUCT USED FOR UNKNOWN INDICATION

REACTIONS (1)
  - DEEP VEIN THROMBOSIS [None]
